FAERS Safety Report 6585008-2 (Version None)
Quarter: 2010Q1

REPORT INFORMATION
  Report Type: 
  Country: None (occurrence: None)
  Receive Date: 20100217
  Receipt Date: 20091026
  Transmission Date: 20100710
  Serious: Yes (Death, Hospitalization, Other)
  Sender: FDA-Public Use
  Company Number: GB-CELGENEUS-167-50794-10020138

PATIENT
  Age: 71 Year
  Sex: Female

DRUGS (8)
  1. VIDAZA [Suspect]
     Route: 058
     Dates: start: 20070702, end: 20070706
  2. VIDAZA [Suspect]
     Route: 058
     Dates: start: 20070730, end: 20070803
  3. VALPROATE SODIUM [Suspect]
     Route: 048
     Dates: start: 20070702, end: 20070819
  4. VALPROATE SODIUM [Suspect]
  5. THEOPHYLLINE [Suspect]
     Route: 048
     Dates: start: 20070702, end: 20070819
  6. THEOPHYLLINE [Suspect]
  7. ATRA [Suspect]
     Route: 048
     Dates: start: 20070702, end: 20070819
  8. ATRA [Suspect]

REACTIONS (2)
  - NEUTROPENIC SEPSIS [None]
  - PYREXIA [None]
